FAERS Safety Report 10025135 (Version 1)
Quarter: 2014Q1

REPORT INFORMATION
  Report Type: Spontaneous
  Country: US (occurrence: None)
  Receive Date: 20140212
  Receipt Date: 20140212
  Transmission Date: 20141002
  Serious: Yes (Hospitalization)
  Sender: FDA-Public Use
  Company Number: 13-05085

PATIENT
  Age: 65 Year
  Sex: Male
  Weight: 72.58 kg

DRUGS (6)
  1. ALBUTEROL SULFATE [Suspect]
     Indication: CHRONIC OBSTRUCTIVE PULMONARY DISEASE
  2. ALBUTEROL SULFATE [Suspect]
     Indication: EMPHYSEMA
  3. DUONEB (IPRATROIUM BROMIDE 0.5MG/ALBUTEROL SULFATE 3MG INHALATION SOLUTION) [Concomitant]
  4. FLOMAX (TAMSULOSIN) [Concomitant]
  5. SINGULAIR (MONTELUKAST) 10MG [Concomitant]
  6. LISINOPRIL [Concomitant]

REACTIONS (3)
  - Throat irritation [None]
  - Pyrexia [None]
  - Pneumonia [None]
